FAERS Safety Report 16263298 (Version 1)
Quarter: 2019Q2

REPORT INFORMATION
  Report Type: Spontaneous
  Country: US (occurrence: US)
  Receive Date: 20190502
  Receipt Date: 20190502
  Transmission Date: 20190711
  Serious: Yes (Hospitalization)
  Sender: FDA-Public Use
  Company Number: US-TEVA-2019-US-1043006

PATIENT
  Age: 76 Year
  Sex: Female

DRUGS (3)
  1. FOSINOPRIL SODIUM TABLETS TEVA [Suspect]
     Active Substance: FOSINOPRIL SODIUM
     Indication: BLOOD PRESSURE ABNORMAL
     Dates: start: 1999
  2. PLAVIX [Concomitant]
     Active Substance: CLOPIDOGREL BISULFATE
  3. PROCARDIA [Concomitant]
     Active Substance: NIFEDIPINE

REACTIONS (1)
  - Chest pain [Unknown]

NARRATIVE: CASE EVENT DATE: 201805
